FAERS Safety Report 20523850 (Version 1)
Quarter: 2022Q1

REPORT INFORMATION
  Report Type: Spontaneous
  Country: US (occurrence: US)
  Receive Date: 20220228
  Receipt Date: 20220228
  Transmission Date: 20220424
  Serious: No
  Sender: FDA-Public Use
  Company Number: US-ENDO PHARMACEUTICALS INC-2021-013460

PATIENT
  Sex: Female

DRUGS (2)
  1. NASCOBAL [Suspect]
     Active Substance: CYANOCOBALAMIN
     Indication: Vitamin B12 deficiency
     Dosage: 1 DF, UNKNOWN
     Route: 065
     Dates: start: 20210804
  2. NASCOBAL [Suspect]
     Active Substance: CYANOCOBALAMIN
     Indication: Vitamin B12 deficiency
     Dosage: 1 DF, UNKNOWN
     Route: 065
     Dates: start: 20210804

REACTIONS (1)
  - Device colour issue [None]

NARRATIVE: CASE EVENT DATE: 20210804
